FAERS Safety Report 17153696 (Version 1)
Quarter: 2019Q4

REPORT INFORMATION
  Report Type: Spontaneous
  Country: DE (occurrence: DE)
  Receive Date: 20191213
  Receipt Date: 20191213
  Transmission Date: 20200122
  Serious: Yes (Other)
  Sender: FDA-Public Use
  Company Number: DE-COLLEGIUM PHARMACEUTICAL, INC.-DE-2019COL001495

PATIENT
  Sex: Female

DRUGS (2)
  1. TAPENTADOL EXTENDED RELEASE [Suspect]
     Active Substance: TAPENTADOL
     Indication: PAIN
     Dosage: 50 MG, BID
     Route: 048
  2. FALITHROM [Suspect]
     Active Substance: PHENPROCOUMON
     Indication: PRODUCT USED FOR UNKNOWN INDICATION
     Dosage: UNK

REACTIONS (2)
  - Drug interaction [Recovered/Resolved]
  - Renal failure [Recovered/Resolved]
